FAERS Safety Report 10394625 (Version 1)
Quarter: 2014Q3

REPORT INFORMATION
  Report Type: Spontaneous
  Country: DE (occurrence: DE)
  Receive Date: 20140820
  Receipt Date: 20140820
  Transmission Date: 20150326
  Serious: Yes (Other)
  Sender: FDA-Public Use
  Company Number: GXKR2014DE002913

PATIENT
  Sex: Female

DRUGS (3)
  1. METOPROLOLSUCCINAT 1A PHARMA [Suspect]
     Active Substance: METOPROLOL SUCCINATE
     Indication: TACHYCARDIA
     Dosage: 47.5 MG, QHS
     Route: 048
  2. METOPROLOLSUCCINAT 1A PHARMA [Suspect]
     Active Substance: METOPROLOL SUCCINATE
     Dosage: 23.75 MG, QHS
     Route: 048
  3. METOPROLOLSUCCINAT 1A PHARMA [Suspect]
     Active Substance: METOPROLOL SUCCINATE
     Dosage: 23.75 MG, QOD
     Route: 048
     Dates: start: 201403, end: 201404

REACTIONS (5)
  - Hallucination [Unknown]
  - Gait disturbance [Unknown]
  - Feeling hot [Unknown]
  - Paralysis [Unknown]
  - Peripheral vascular disorder [Unknown]
